FAERS Safety Report 7478210-9 (Version None)
Quarter: 2011Q2

REPORT INFORMATION
  Report Type: 
  Country: None (occurrence: None)
  Receive Date: 20110513
  Receipt Date: 20110505
  Transmission Date: 20111010
  Serious: Yes (Other)
  Sender: FDA-Public Use
  Company Number: PHFR2011GB02456

PATIENT
  Sex: Male

DRUGS (3)
  1. CLOZARIL [Suspect]
     Indication: SCHIZOPHRENIA
     Dosage: 300 MG, QD
     Route: 048
     Dates: start: 20110330
  2. ANTIPSYCHOTICS [Concomitant]
  3. NEUPOGEN [Suspect]

REACTIONS (5)
  - NEUTROPHIL COUNT INCREASED [None]
  - QUALITY OF LIFE DECREASED [None]
  - NEUTROPENIA [None]
  - WHITE BLOOD CELL COUNT INCREASED [None]
  - MALAISE [None]
